FAERS Safety Report 10224793 (Version 1)
Quarter: 2014Q2

REPORT INFORMATION
  Report Type: Spontaneous
  Country: US (occurrence: US)
  Receive Date: 20140609
  Receipt Date: 20140609
  Transmission Date: 20141212
  Serious: No
  Sender: FDA-Public Use
  Company Number: US-TEVA-486701USA

PATIENT
  Age: 20 Year
  Sex: Male

DRUGS (2)
  1. CLARAVIS [Suspect]
     Route: 048
  2. AMNESTEEM [Suspect]

REACTIONS (1)
  - Memory impairment [Unknown]
